FAERS Safety Report 18357431 (Version 1)
Quarter: 2020Q4

REPORT INFORMATION
  Report Type: Report from Study
  Country: TH (occurrence: TH)
  Receive Date: 20201008
  Receipt Date: 20201008
  Transmission Date: 20210114
  Serious: Yes (Other)
  Sender: FDA-Public Use
  Company Number: TH-PBT-000020

PATIENT
  Age: 38 Year

DRUGS (9)
  1. TACROLIMUS. [Suspect]
     Active Substance: TACROLIMUS
     Indication: PROPHYLAXIS AGAINST TRANSPLANT REJECTION
     Route: 065
  2. GANCICLOVIR SODIUM. [Concomitant]
     Active Substance: GANCICLOVIR SODIUM
     Indication: ANTIVIRAL PROPHYLAXIS
     Route: 065
  3. PREDNISOLONE. [Suspect]
     Active Substance: PREDNISOLONE
     Indication: PROPHYLAXIS AGAINST TRANSPLANT REJECTION
     Dosage: PER DAY
     Route: 065
  4. MYCOPHENOLATE MOFETIL. [Suspect]
     Active Substance: MYCOPHENOLATE MOFETIL
     Indication: PROPHYLAXIS AGAINST TRANSPLANT REJECTION
     Dosage: 1500 TO 2000 MG
     Route: 065
  5. SULFAMETHOXAZOLE [Concomitant]
     Active Substance: SULFAMETHOXAZOLE
     Indication: PNEUMOCYSTIS JIROVECII PNEUMONIA
  6. PREDNISOLONE. [Suspect]
     Active Substance: PREDNISOLONE
     Indication: PROPHYLAXIS AGAINST TRANSPLANT REJECTION
     Dosage: PER DAY
     Route: 065
  7. PREDNISOLONE. [Suspect]
     Active Substance: PREDNISOLONE
     Indication: PROPHYLAXIS AGAINST TRANSPLANT REJECTION
     Dosage: D 5 TO 10 MG PER DAY
     Route: 065
  8. ISONIAZID. [Concomitant]
     Active Substance: ISONIAZID
     Indication: ANTIBIOTIC PROPHYLAXIS
     Route: 065
  9. ACICLOVIR [Concomitant]
     Active Substance: ACYCLOVIR
     Indication: HERPES SIMPLEX
     Route: 065

REACTIONS (1)
  - Urinoma [Unknown]
